FAERS Safety Report 6913842-5 (Version None)
Quarter: 2010Q3

REPORT INFORMATION
  Report Type: 
  Country: None (occurrence: None)
  Receive Date: 20100809
  Receipt Date: 20100802
  Transmission Date: 20110219
  Serious: Yes (Death, Other)
  Sender: FDA-Public Use
  Company Number: KR-ROCHE-718852

PATIENT

DRUGS (1)
  1. GANCICLOVIR SODIUM [Suspect]
     Indication: CYTOMEGALOVIRUS INFECTION
     Route: 065

REACTIONS (16)
  - BACTERIAL SEPSIS [None]
  - CEREBRAL HAEMORRHAGE [None]
  - CYTOMEGALOVIRUS COLITIS [None]
  - DIARRHOEA [None]
  - FUNGAL SEPSIS [None]
  - HEPATITIS [None]
  - MENINGITIS BACTERIAL [None]
  - NEUTROPENIA [None]
  - NEUTROPENIC INFECTION [None]
  - PNEUMONIA [None]
  - PNEUMONIA ADENOVIRAL [None]
  - PNEUMONIA BACTERIAL [None]
  - PNEUMONIA CYTOMEGALOVIRAL [None]
  - PNEUMONIA FUNGAL [None]
  - PULMONARY HAEMORRHAGE [None]
  - ROAD TRAFFIC ACCIDENT [None]
